FAERS Safety Report 14818257 (Version 1)
Quarter: 2018Q2

REPORT INFORMATION
  Report Type: Spontaneous
  Country: DE (occurrence: DE)
  Receive Date: 20180427
  Receipt Date: 20180427
  Transmission Date: 20180711
  Serious: Yes (Hospitalization)
  Sender: FDA-Public Use
  Company Number: DE-WEST-WARD PHARMACEUTICALS CORP.-DE-H14001-18-03297

PATIENT
  Sex: Female
  Weight: 68 kg

DRUGS (6)
  1. ZELBORAF [Suspect]
     Active Substance: VEMURAFENIB
     Indication: MALIGNANT MELANOMA
     Route: 048
     Dates: start: 20171214, end: 20171224
  2. CEFUROXIM [Suspect]
     Active Substance: CEFUROXIME
     Indication: ABSCESS
     Dosage: ()
  3. CEFUROXIM [Suspect]
     Active Substance: CEFUROXIME
     Indication: METASTASES TO LYMPH NODES
     Route: 048
     Dates: start: 20171204, end: 20171214
  4. IBUPROFEN. [Suspect]
     Active Substance: IBUPROFEN
     Indication: ABSCESS
     Dosage: ()
  5. COTELLIC [Suspect]
     Active Substance: COBIMETINIB
     Indication: MALIGNANT MELANOMA
     Route: 048
     Dates: start: 20171214, end: 20171224
  6. IBUPROFEN. [Suspect]
     Active Substance: IBUPROFEN
     Indication: METASTASES TO LYMPH NODES
     Route: 048
     Dates: start: 20171204, end: 20171214

REACTIONS (2)
  - Enanthema [Recovered/Resolved]
  - Erythema multiforme [Recovered/Resolved]

NARRATIVE: CASE EVENT DATE: 20171223
